FAERS Safety Report 8465369-X (Version None)
Quarter: 2012Q2

REPORT INFORMATION
  Report Type: 
  Country: None (occurrence: None)
  Receive Date: 20120626
  Receipt Date: 20120614
  Transmission Date: 20120825
  Serious: Yes (Hospitalization)
  Sender: FDA-Public Use
  Company Number: FR-SANOFI-AVENTIS-2012SA042961

PATIENT
  Age: 54 Year
  Sex: Female

DRUGS (8)
  1. ELOXATIN [Suspect]
     Route: 025
     Dates: start: 20120404, end: 20120404
  2. IRINOTECAN HCL [Suspect]
     Route: 025
     Dates: start: 20120515, end: 20120515
  3. ELOXATIN [Suspect]
     Route: 025
     Dates: start: 20120315, end: 20120315
  4. IRINOTECAN HCL [Suspect]
     Route: 025
     Dates: start: 20120404, end: 20120404
  5. ERBITUX [Suspect]
     Route: 041
     Dates: start: 20120404, end: 20120404
  6. ERBITUX [Suspect]
     Route: 041
     Dates: start: 20120314, end: 20120314
  7. FLUOROURACIL [Suspect]
     Route: 025
     Dates: start: 20120315, end: 20120315
  8. FLUOROURACIL [Suspect]
     Route: 025
     Dates: start: 20120405, end: 20120406

REACTIONS (1)
  - DUODENAL ULCER [None]
